FAERS Safety Report 17572637 (Version 1)
Quarter: 2020Q1

REPORT INFORMATION
  Report Type: Spontaneous
  Country: US (occurrence: US)
  Receive Date: 20200321
  Receipt Date: 20200321
  Transmission Date: 20200409
  Serious: Yes (Hospitalization)
  Sender: FDA-Public Use
  Company Number: None

PATIENT
  Age: 58 Year
  Sex: Female

DRUGS (13)
  1. POT CHLORIDE [Concomitant]
     Active Substance: POTASSIUM CHLORIDE
  2. FUROSEMIDE. [Concomitant]
     Active Substance: FUROSEMIDE
  3. BOTOX [Suspect]
     Active Substance: ONABOTULINUMTOXINA
     Indication: ESSENTIAL HYPERTENSION
     Dosage: ?          OTHER FREQUENCY:EVERY 12 WEEKS;?
     Route: 030
     Dates: start: 20200312
  4. MODAFINIL. [Concomitant]
     Active Substance: MODAFINIL
  5. PROPRANOLOL [Concomitant]
     Active Substance: PROPRANOLOL HYDROCHLORIDE
  6. VASCEPA [Concomitant]
     Active Substance: ICOSAPENT ETHYL
  7. ATORVASTATIN [Concomitant]
     Active Substance: ATORVASTATIN
  8. ENGALITY [Concomitant]
  9. AMPLODIPINE [Concomitant]
  10. CEFDINIR. [Concomitant]
     Active Substance: CEFDINIR
  11. MONTELUKAST [Concomitant]
     Active Substance: MONTELUKAST SODIUM
  12. PREDNIDONE [Concomitant]
  13. LAMOTRIGINE. [Concomitant]
     Active Substance: LAMOTRIGINE

REACTIONS (4)
  - Corona virus infection [None]
  - Fatigue [None]
  - Oropharyngeal pain [None]
  - Pneumonia [None]

NARRATIVE: CASE EVENT DATE: 20200318
